FAERS Safety Report 6158949-8 (Version None)
Quarter: 2009Q2

REPORT INFORMATION
  Report Type: 
  Country: None (occurrence: None)
  Receive Date: 20090417
  Receipt Date: 20090413
  Transmission Date: 20091009
  Serious: Yes (Other)
  Sender: FDA-Public Use
  Company Number: US-WYE-H07296908

PATIENT
  Sex: Female

DRUGS (5)
  1. PREMPRO [Suspect]
     Dosage: UNKNOWN
  2. OGEN [Suspect]
  3. PROVERA [Suspect]
     Dosage: UNKNOWN
  4. CONJUGATED ESTROGENS [Suspect]
  5. ESTRACE [Suspect]
     Dosage: UNKNOWN

REACTIONS (1)
  - BREAST CANCER METASTATIC [None]
